FAERS Safety Report 5908412-1 (Version None)
Quarter: 2008Q4

REPORT INFORMATION
  Report Type: 
  Country: None (occurrence: None)
  Receive Date: 20081006
  Receipt Date: 20080925
  Transmission Date: 20090506
  Serious: Yes (Other)
  Sender: FDA-Public Use
  Company Number: US-ROCHE-588275

PATIENT
  Sex: Female

DRUGS (3)
  1. PEG-INTERFERON A-2A (RO 25-8310) [Suspect]
     Indication: HEPATITIS C
     Dosage: FORM: PFS PATIENT IN WEEK 33
     Route: 065
     Dates: start: 20080208
  2. RIBASPHERE [Suspect]
     Indication: HEPATITIS C
     Dosage: PATINET IN WEEK 33
     Route: 065
     Dates: start: 20080208
  3. TAMOXIFEN CITRATE [Concomitant]

REACTIONS (1)
  - MASS [None]
